FAERS Safety Report 10917507 (Version 1)
Quarter: 2015Q1

REPORT INFORMATION
  Report Type: Spontaneous
  Country: US (occurrence: None)
  Receive Date: 20150312
  Receipt Date: 20150312
  Transmission Date: 20150721
  Serious: Yes (Other)
  Sender: FDA-Public Use
  Company Number: None

PATIENT
  Age: 43 Year
  Sex: Male
  Weight: 136.08 kg

DRUGS (1)
  1. EPINEPHRINE INJECTION [Suspect]
     Active Substance: EPINEPHRINE
     Indication: ANAPHYLACTIC REACTION
     Dosage: 1 PEN AS NEEDED INTO THE MUSCLE

REACTIONS (2)
  - Injury associated with device [None]
  - Device breakage [None]

NARRATIVE: CASE EVENT DATE: 20150308
